FAERS Safety Report 8031619-7 (Version None)
Quarter: 2012Q1

REPORT INFORMATION
  Report Type: 
  Country: None (occurrence: None)
  Receive Date: 20120109
  Receipt Date: 20120105
  Transmission Date: 20120608
  Serious: Yes (Death, Other)
  Sender: FDA-Public Use
  Company Number: PHHY2011DK78380

PATIENT
  Sex: Female
  Weight: 61 kg

DRUGS (10)
  1. IMOCLONE [Concomitant]
     Indication: INSOMNIA
     Dosage: UNK
  2. FEXOFENADINE HCL [Concomitant]
     Indication: RHINITIS ALLERGIC
     Dosage: UNK
  3. WARFARIN SODIUM [Concomitant]
  4. PAMOL [Concomitant]
     Dosage: UNK
  5. KODEIN [Concomitant]
     Indication: PAIN
     Dosage: UNK
     Dates: start: 20110414
  6. ATORVASTATIN CALCIUM [Concomitant]
     Indication: DEPRESSION
  7. AMIODARONE HCL [Suspect]
     Indication: ATRIAL FIBRILLATION
     Dosage: 200 MG, QD
     Route: 048
  8. PRIMPERAN TAB [Interacting]
     Indication: SURGERY
     Dates: start: 20110414
  9. CIPROFLOXACIN [Concomitant]
     Indication: URINARY TRACT INFECTION
     Dates: start: 20110414
  10. IBUPROFEN [Concomitant]
     Indication: PAIN
     Dosage: UNK
     Dates: start: 20110415

REACTIONS (11)
  - DRUG LEVEL INCREASED [None]
  - TOXICITY TO VARIOUS AGENTS [None]
  - PULMONARY OEDEMA [None]
  - NAUSEA [None]
  - ARRHYTHMIA [None]
  - MYOCARDIAL FIBROSIS [None]
  - CHEST PAIN [None]
  - VOMITING [None]
  - DRUG INTERACTION [None]
  - MALAISE [None]
  - DYSPNOEA [None]
